FAERS Safety Report 7984865-2 (Version None)
Quarter: 2011Q4

REPORT INFORMATION
  Report Type: 
  Country: None (occurrence: None)
  Receive Date: 20111216
  Receipt Date: 20110921
  Transmission Date: 20120403
  Serious: No
  Sender: FDA-Public Use
  Company Number: US-ALLERGAN-1112594US

PATIENT
  Age: 66 Year
  Sex: Female

DRUGS (2)
  1. OTC WETTING SOLUTION [Concomitant]
     Dosage: UNK
  2. LATISSE [Suspect]
     Indication: GROWTH OF EYELASHES
     Dosage: 1 GTT, QHS
     Route: 061
     Dates: start: 20110725, end: 20110901

REACTIONS (5)
  - EYELID IRRITATION [None]
  - EYELID OEDEMA [None]
  - EYELID PAIN [None]
  - WRONG TECHNIQUE IN DRUG USAGE PROCESS [None]
  - ERYTHEMA OF EYELID [None]
